FAERS Safety Report 25228162 (Version 2)
Quarter: 2025Q4

REPORT INFORMATION
  Report Type: Spontaneous
  Country: JP (occurrence: JP)
  Receive Date: 20250423
  Receipt Date: 20251126
  Transmission Date: 20260117
  Serious: Yes (Other)
  Sender: BRISTOL-MYERS SQUIBB COMPANY
  Company Number: JP-BRISTOL-MYERS SQUIBB COMPANY-2025-058917

PATIENT
  Age: 8 Decade
  Sex: Female

DRUGS (1)
  1. AUGTYRO [Suspect]
     Active Substance: REPOTRECTINIB
     Indication: Non-small cell lung cancer recurrent
     Route: 048
     Dates: start: 20250311, end: 20250325

REACTIONS (5)
  - Cholecystitis acute [Unknown]
  - Dizziness [Unknown]
  - Constipation [Unknown]
  - Paraesthesia [Unknown]
  - Visual impairment [Unknown]

NARRATIVE: CASE EVENT DATE: 20250301
